FAERS Safety Report 9330871 (Version 2)
Quarter: 2013Q2

REPORT INFORMATION
  Report Type: Spontaneous
  Country: DK (occurrence: DK)
  Receive Date: 20130605
  Receipt Date: 20130614
  Transmission Date: 20140414
  Serious: Yes (Other)
  Sender: FDA-Public Use
  Company Number: DK-ROCHE-1232850

PATIENT
  Age: 57 Year
  Sex: Female
  Weight: 84 kg

DRUGS (2)
  1. ROACTEMRA [Suspect]
     Indication: PRODUCT USED FOR UNKNOWN INDICATION
     Route: 065
     Dates: start: 20130513
  2. ARAVA [Concomitant]
     Route: 065

REACTIONS (2)
  - Retinal detachment [Unknown]
  - Thrombocytopenia [Unknown]
